FAERS Safety Report 7468691-9 (Version None)
Quarter: 2011Q2

REPORT INFORMATION
  Report Type: 
  Country: None (occurrence: None)
  Receive Date: 20110510
  Receipt Date: 20110502
  Transmission Date: 20111010
  Serious: No
  Sender: FDA-Public Use
  Company Number: US-BIOGENIDEC-2010BI031323

PATIENT
  Age: 39 Year
  Sex: Female

DRUGS (1)
  1. TYSABRI [Suspect]
     Indication: MULTIPLE SCLEROSIS
     Route: 042
     Dates: start: 20100408, end: 20110126

REACTIONS (10)
  - DRUG INEFFECTIVE [None]
  - PAIN [None]
  - NASOPHARYNGITIS [None]
  - MULTIPLE SCLEROSIS [None]
  - MUSCLE TIGHTNESS [None]
  - LOSS OF CONTROL OF LEGS [None]
  - MUSCLE SPASMS [None]
  - PYREXIA [None]
  - MULTIPLE SCLEROSIS RELAPSE [None]
  - FATIGUE [None]
